FAERS Safety Report 25259585 (Version 1)
Quarter: 2025Q2

REPORT INFORMATION
  Report Type: Spontaneous
  Country: US (occurrence: None)
  Receive Date: 20250430
  Receipt Date: 20250430
  Transmission Date: 20250716
  Serious: Yes (Other)
  Sender: FDA-CTU
  Company Number: None

PATIENT
  Age: 78 Year
  Sex: Female
  Weight: 45.36 kg

DRUGS (1)
  1. EVENITY [Suspect]
     Active Substance: ROMOSOZUMAB-AQQG
     Indication: Hypersensitivity
     Dosage: FREQUENCY : MONTHLY;?
     Route: 058
     Dates: start: 20240829, end: 20250424

REACTIONS (5)
  - Eye swelling [None]
  - Ocular hyperaemia [None]
  - Swelling face [None]
  - Erythema [None]
  - Drug hypersensitivity [None]

NARRATIVE: CASE EVENT DATE: 20250424
